FAERS Safety Report 4350584-7 (Version None)
Quarter: 2004Q2

REPORT INFORMATION
  Report Type: 
  Country: None (occurrence: None)
  Receive Date: 20040427
  Receipt Date: 20040416
  Transmission Date: 20050107
  Serious: Yes (Other)
  Sender: FDA-Public Use
  Company Number: 430008M04USA

PATIENT
  Age: 39 Year
  Sex: Female

DRUGS (8)
  1. NOVANTRONE [Suspect]
     Indication: MULTIPLE SCLEROSIS
     Dates: start: 20040301
  2. PAROXETINE HCL [Concomitant]
  3. AMLODIPINE BESYLATE [Concomitant]
  4. RANIDITINE  HYDROCHLORIDE [Concomitant]
  5. MOMETASONE FUROATE [Concomitant]
  6. ALLEGRA-D [Concomitant]
  7. VENLAFAXINE HCL [Concomitant]
  8. ALBUTEROL SULFATE [Concomitant]

REACTIONS (1)
  - DEAFNESS UNILATERAL [None]
